FAERS Safety Report 6388186-3 (Version None)
Quarter: 2009Q4

REPORT INFORMATION
  Report Type: 
  Country: None (occurrence: None)
  Receive Date: 20091001
  Receipt Date: 20091001
  Transmission Date: 20100525
  Serious: Yes (Other)
  Sender: FDA-Public Use
  Company Number: None

PATIENT
  Sex: Female
  Weight: 71.2147 kg

DRUGS (2)
  1. CHANTIX [Suspect]
     Dosage: 2 TAB - TWICE A DAY
     Dates: start: 20090712, end: 20090910
  2. CHANTIX [Suspect]
     Dosage: 2 TAB - TWICE A DAY
     Dates: start: 20090807, end: 20090910

REACTIONS (5)
  - DRY SKIN [None]
  - GINGIVAL BLEEDING [None]
  - GINGIVITIS [None]
  - RASH [None]
  - SKIN EXFOLIATION [None]
